FAERS Safety Report 18040973 (Version 1)
Quarter: 2020Q3

REPORT INFORMATION
  Report Type: Spontaneous
  Country: US (occurrence: US)
  Receive Date: 20200718
  Receipt Date: 20200718
  Transmission Date: 20201103
  Serious: Yes (Other)
  Sender: FDA-Public Use
  Company Number: US-PURDUE-USA-2020-0157820

PATIENT
  Sex: Male

DRUGS (6)
  1. OXYIR [Suspect]
     Active Substance: OXYCODONE HYDROCHLORIDE
     Indication: PAIN MANAGEMENT
     Dosage: UNK
     Route: 065
     Dates: end: 20190803
  2. MSIR [Suspect]
     Active Substance: MORPHINE SULFATE
     Indication: PAIN MANAGEMENT
     Dosage: UNK
     Route: 065
     Dates: end: 20190803
  3. DILAUDID [Suspect]
     Active Substance: HYDROMORPHONE HYDROCHLORIDE
     Indication: PAIN MANAGEMENT
     Dosage: UNK
     Route: 048
     Dates: end: 20190803
  4. OXYFAST [Suspect]
     Active Substance: OXYCODONE
     Indication: PAIN MANAGEMENT
     Dosage: UNK
     Route: 065
     Dates: end: 20190803
  5. MS CONTIN [Suspect]
     Active Substance: MORPHINE SULFATE
     Indication: PAIN MANAGEMENT
     Dosage: UNK
     Route: 048
     Dates: end: 20190803
  6. OXYCONTIN [Suspect]
     Active Substance: OXYCODONE HYDROCHLORIDE
     Indication: PAIN MANAGEMENT
     Dosage: UNK
     Route: 048
     Dates: end: 20190803

REACTIONS (19)
  - Depression [Unknown]
  - Drug dependence [Unknown]
  - Impaired work ability [Unknown]
  - Impaired driving ability [Unknown]
  - Restless legs syndrome [Unknown]
  - Tinnitus [Unknown]
  - Anxiety [Unknown]
  - Post-traumatic stress disorder [Unknown]
  - Unevaluable event [Unknown]
  - Blood pressure abnormal [Unknown]
  - Drug tolerance [Unknown]
  - Taste disorder [Unknown]
  - Cardiac disorder [Unknown]
  - Tooth loss [Unknown]
  - Hyperhidrosis [Unknown]
  - Insomnia [Unknown]
  - Hyposmia [Unknown]
  - Pulse abnormal [Unknown]
  - Hypoacusis [Unknown]
